FAERS Safety Report 8008105-3 (Version None)
Quarter: 2011Q4

REPORT INFORMATION
  Report Type: 
  Country: None (occurrence: None)
  Receive Date: 20111227
  Receipt Date: 20111221
  Transmission Date: 20120403
  Serious: Yes (Hospitalization, Other)
  Sender: FDA-Public Use
  Company Number: PHEH2011US011367

PATIENT
  Sex: Female
  Weight: 83.9 kg

DRUGS (3)
  1. OMEGA-6 FATTY ACIDS [Suspect]
  2. AMBIEN [Concomitant]
     Indication: INSOMNIA
     Dosage: 0.5 MG, UNK
     Dates: start: 20111130, end: 20111201
  3. FANAPT [Suspect]
     Indication: PSYCHOTIC DISORDER
     Dosage: 6 MG, UNK
     Route: 048
     Dates: start: 20111130, end: 20111201

REACTIONS (7)
  - HYPOXIA [None]
  - HYPOTENSION [None]
  - VISION BLURRED [None]
  - WRONG DRUG ADMINISTERED [None]
  - CYANOSIS [None]
  - DIZZINESS [None]
  - DISORIENTATION [None]
